FAERS Safety Report 6035344-3 (Version None)
Quarter: 2009Q1

REPORT INFORMATION
  Report Type: 
  Country: None (occurrence: None)
  Receive Date: 20090108
  Receipt Date: 20090108
  Transmission Date: 20090719
  Serious: No
  Sender: FDA-Public Use
  Company Number: None

PATIENT
  Age: 57 Year
  Sex: Female
  Weight: 68.0396 kg

DRUGS (1)
  1. ZOLPIDEM [Suspect]
     Indication: INITIAL INSOMNIA
     Dosage: 10MG HALF TABLET AT BED PO
     Route: 048
     Dates: start: 20080518, end: 20081231

REACTIONS (3)
  - DRUG EFFECT DECREASED [None]
  - INITIAL INSOMNIA [None]
  - THERAPEUTIC RESPONSE UNEXPECTED WITH DRUG SUBSTITUTION [None]
